FAERS Safety Report 7793821-9 (Version None)
Quarter: 2011Q4

REPORT INFORMATION
  Report Type: 
  Country: None (occurrence: None)
  Receive Date: 20111003
  Receipt Date: 20110922
  Transmission Date: 20120403
  Serious: Yes (Other)
  Sender: FDA-Public Use
  Company Number: PHEH2011US02606

PATIENT
  Sex: Female

DRUGS (8)
  1. EXFORGE HCT [Suspect]
     Dosage: 160 MG
  2. CENTRUM SILVER [Concomitant]
     Dosage: UNK UKN, UNK
  3. EXFORGE HCT [Suspect]
     Dosage: 320/10/25 MG
  4. MEGABOUNY [Concomitant]
     Dosage: UNK UKN, UNK
  5. DEXLANSOPRAZOLE [Concomitant]
     Dosage: 60 MG, UNK
  6. IBUPROFEN (ADVIL) [Concomitant]
  7. BLOOD PRESSURE PILL [Concomitant]
     Dosage: UNK UKN, UNK
  8. CHROMIUM CHLORIDE [Concomitant]

REACTIONS (16)
  - CERVICAL CYST [None]
  - ANAEMIA [None]
  - FATIGUE [None]
  - SUICIDE ATTEMPT [None]
  - PULMONARY FIBROSIS [None]
  - SCOLIOSIS [None]
  - BACK PAIN [None]
  - DIZZINESS [None]
  - SOMNOLENCE [None]
  - BLOOD PRESSURE FLUCTUATION [None]
  - PULMONARY OEDEMA [None]
  - UTERINE HAEMORRHAGE [None]
  - FEELING ABNORMAL [None]
  - BLOOD PRESSURE DECREASED [None]
  - PAIN [None]
  - VERTIGO [None]
